FAERS Safety Report 10254644 (Version 1)
Quarter: 2014Q2

REPORT INFORMATION
  Report Type: Report from Study
  Country: US (occurrence: US)
  Receive Date: 20140624
  Receipt Date: 20140624
  Transmission Date: 20141212
  Serious: Yes (Other)
  Sender: FDA-Public Use
  Company Number: US-ROCHE-1418913

PATIENT
  Sex: Male

DRUGS (11)
  1. AVASTIN [Suspect]
     Indication: RETINAL VEIN OCCLUSION
     Dosage: RIGHT EYE
     Route: 050
  2. METOPROLOL SUCCINATE [Concomitant]
     Route: 065
  3. AGGRENOX [Concomitant]
     Dosage: 25 MG-200 MG
     Route: 065
  4. ALPHAGAN P [Concomitant]
  5. ATORVASTATIN [Concomitant]
     Route: 065
  6. DITROPAN XL [Concomitant]
     Route: 065
  7. ENALAPRIL MALEATE [Concomitant]
     Route: 065
  8. FAMOTIDINE [Concomitant]
     Route: 065
  9. FENOFIBRATE [Concomitant]
  10. SERTRALINE HCL [Concomitant]
     Route: 065
  11. TAMSULOSIN HCL [Concomitant]
     Route: 065

REACTIONS (6)
  - Macular oedema [Unknown]
  - Retinal vein occlusion [Unknown]
  - IIIrd nerve paralysis [Unknown]
  - Retinal haemorrhage [Unknown]
  - Cataract nuclear [Unknown]
  - Off label use [Unknown]
